FAERS Safety Report 13008545 (Version 2)
Quarter: 2016Q4

REPORT INFORMATION
  Report Type: Report from Study
  Country: TH (occurrence: TH)
  Receive Date: 20161208
  Receipt Date: 20161215
  Transmission Date: 20170207
  Serious: Yes (Other)
  Sender: FDA-Public Use
  Company Number: TH-CONCORDIA PHARMACEUTICALS INC.-GSH201612-006277

PATIENT
  Age: 39 Year
  Sex: Female
  Weight: 68 kg

DRUGS (1)
  1. HYDROXYCHLOROQUINE [Suspect]
     Active Substance: HYDROXYCHLOROQUINE
     Indication: AUTOIMMUNE HAEMOLYTIC ANAEMIA
     Route: 065

REACTIONS (4)
  - Retinopathy [Unknown]
  - Retinal depigmentation [Unknown]
  - Optical coherence tomography abnormal [Unknown]
  - Visual field defect [Unknown]
